FAERS Safety Report 12739946 (Version 2)
Quarter: 2016Q4

REPORT INFORMATION
  Report Type: Report from Study
  Country: US (occurrence: US)
  Receive Date: 20160913
  Receipt Date: 20161102
  Transmission Date: 20170207
  Serious: Yes (Other)
  Sender: FDA-Public Use
  Company Number: US-GILEAD-2016-0231779

PATIENT
  Age: 75 Year
  Sex: Female

DRUGS (1)
  1. IDELALISIB [Suspect]
     Active Substance: IDELALISIB
     Indication: CHRONIC LYMPHOCYTIC LEUKAEMIA
     Dosage: 150 MG, UNK
     Route: 048
     Dates: start: 20160323

REACTIONS (8)
  - Urinary tract infection [Unknown]
  - Blood sodium decreased [Unknown]
  - Dacryocanaliculitis [Not Recovered/Not Resolved]
  - Swelling face [Unknown]
  - Secretion discharge [Unknown]
  - Alopecia [Unknown]
  - Febrile neutropenia [Unknown]
  - Platelet count decreased [Unknown]
